FAERS Safety Report 14262405 (Version 1)
Quarter: 2017Q4

REPORT INFORMATION
  Report Type: Report from Study
  Country: US (occurrence: US)
  Receive Date: 20171208
  Receipt Date: 20171208
  Transmission Date: 20180321
  Serious: Yes (Hospitalization)
  Sender: FDA-Public Use
  Company Number: US-KYOWAKIRIN-2017BKK001162

PATIENT

DRUGS (1)
  1. GRANISETRON [Suspect]
     Active Substance: GRANISETRON
     Indication: PROPHYLAXIS OF NAUSEA AND VOMITING
     Dosage: 1 DF, 1X/WEEK
     Route: 062
     Dates: start: 201702, end: 20170413

REACTIONS (7)
  - Application site rash [Unknown]
  - Drug prescribing error [Unknown]
  - Hypersensitivity [Unknown]
  - Application site pruritus [Unknown]
  - Intentional product misuse [Unknown]
  - Application site erythema [Not Recovered/Not Resolved]
  - Infusion site infection [Unknown]

NARRATIVE: CASE EVENT DATE: 2017
